FAERS Safety Report 10729631 (Version 1)
Quarter: 2015Q1

REPORT INFORMATION
  Report Type: Spontaneous
  Country: US (occurrence: US)
  Receive Date: 20150122
  Receipt Date: 20150122
  Transmission Date: 20150721
  Serious: No
  Sender: FDA-Public Use
  Company Number: US-CELGENEUS-163-20785-14060754

PATIENT
  Age: 57 Year
  Sex: Female

DRUGS (2)
  1. THALOMID [Suspect]
     Active Substance: THALIDOMIDE
     Indication: LICHENIFICATION
     Route: 048
     Dates: start: 201305, end: 201406
  2. THALOMID [Suspect]
     Active Substance: THALIDOMIDE
     Route: 048

REACTIONS (1)
  - Neuropathy peripheral [Recovering/Resolving]

NARRATIVE: CASE EVENT DATE: 201407
